FAERS Safety Report 11302417 (Version 1)
Quarter: 2015Q3

REPORT INFORMATION
  Report Type: Spontaneous
  Country: US (occurrence: None)
  Receive Date: 20150723
  Receipt Date: 20150723
  Transmission Date: 20151125
  Serious: Yes (Hospitalization)
  Sender: FDA-Public Use
  Company Number: None

PATIENT
  Age: 31 Year
  Sex: Female
  Weight: 82.27 kg

DRUGS (3)
  1. CARBOPLATIN. [Suspect]
     Active Substance: CARBOPLATIN
     Dates: end: 20150623
  2. TAXOL [Suspect]
     Active Substance: PACLITAXEL
     Dates: end: 20150623
  3. CISPLATIN. [Suspect]
     Active Substance: CISPLATIN
     Dates: end: 20150219

REACTIONS (9)
  - Hypokalaemia [None]
  - Asthenia [None]
  - Clostridium difficile colitis [None]
  - Dizziness [None]
  - Vomiting [None]
  - Dehydration [None]
  - Hyponatraemia [None]
  - Back pain [None]
  - Confusional state [None]

NARRATIVE: CASE EVENT DATE: 20150707
